FAERS Safety Report 11255882 (Version 1)
Quarter: 2015Q3

REPORT INFORMATION
  Report Type: Spontaneous
  Country: US (occurrence: US)
  Receive Date: 20150709
  Receipt Date: 20150709
  Transmission Date: 20151125
  Serious: Yes (Other)
  Sender: FDA-Public Use
  Company Number: US-ASTRAZENECA-2015SE65105

PATIENT
  Sex: Female

DRUGS (1)
  1. NEXIUM [Suspect]
     Active Substance: ESOMEPRAZOLE MAGNESIUM
     Dosage: UNKNOWN
     Route: 048

REACTIONS (13)
  - Malabsorption [Unknown]
  - Dyspepsia [Unknown]
  - Diverticulitis [Unknown]
  - Barrett^s oesophagus [Unknown]
  - Diarrhoea [Unknown]
  - Blood potassium decreased [Unknown]
  - Tooth disorder [Unknown]
  - Blood magnesium decreased [Unknown]
  - Weight increased [Unknown]
  - Adverse event [Unknown]
  - Blood calcium decreased [Unknown]
  - Gallbladder disorder [Unknown]
  - Trousseau^s sign [Unknown]
